FAERS Safety Report 15627509 (Version 1)
Quarter: 2018Q4

REPORT INFORMATION
  Report Type: Spontaneous
  Country: US (occurrence: US)
  Receive Date: 20181116
  Receipt Date: 20181116
  Transmission Date: 20190205
  Serious: Yes (Hospitalization)
  Sender: FDA-Public Use
  Company Number: None

PATIENT
  Age: 57 Year
  Sex: Female
  Weight: 87.3 kg

DRUGS (9)
  1. ZYRTEC [Concomitant]
     Active Substance: CETIRIZINE HYDROCHLORIDE
     Dates: start: 20180824
  2. SYNTHROID [Concomitant]
     Active Substance: LEVOTHYROXINE SODIUM
  3. CYTOMEL [Concomitant]
     Active Substance: LIOTHYRONINE SODIUM
  4. VALTRAX [Concomitant]
  5. NUTROPIN AQ [Concomitant]
     Active Substance: SOMATROPIN
     Dates: start: 20180401
  6. COLASE [Concomitant]
     Dates: start: 20180401
  7. NEXIUM [Concomitant]
     Active Substance: ESOMEPRAZOLE MAGNESIUM
     Dates: start: 20171201
  8. NEURONTIN [Concomitant]
     Active Substance: GABAPENTIN
     Dates: start: 20180824
  9. ATORVASTATIN/PLACEBO, 40MG [Suspect]
     Active Substance: ATORVASTATIN
     Indication: BREAST CANCER
     Route: 048
     Dates: start: 20161116, end: 20181024

REACTIONS (3)
  - Back injury [None]
  - Fall [None]
  - Joint injury [None]

NARRATIVE: CASE EVENT DATE: 20181018
